FAERS Safety Report 6299907-2 (Version None)
Quarter: 2009Q3

REPORT INFORMATION
  Report Type: 
  Country: None (occurrence: None)
  Receive Date: 20090806
  Receipt Date: 20090727
  Transmission Date: 20100115
  Serious: Yes (Other)
  Sender: FDA-Public Use
  Company Number: PHHY2009FR29387

PATIENT
  Sex: Male

DRUGS (7)
  1. LEPONEX [Suspect]
     Indication: SCHIZOPHRENIA
     Dosage: 100 MG, TID
  2. AKINETON [Concomitant]
     Dosage: UNK
  3. TRANXENE [Concomitant]
     Dosage: 20 MG, TID
  4. ELISOR [Concomitant]
     Dosage: 20 MG, QD
     Dates: start: 20070101
  5. FORLAX [Concomitant]
     Dosage: UNK
  6. ANAFRANIL [Concomitant]
     Dosage: 75 MG, QD
     Dates: start: 20070101
  7. TERCIAN [Concomitant]
     Dosage: 25 MG, BID
     Dates: start: 20070101

REACTIONS (3)
  - LEUKOPENIA [None]
  - LUNG NEOPLASM MALIGNANT [None]
  - NEUTROPENIA [None]
